FAERS Safety Report 23972637 (Version 1)
Quarter: 2024Q2

REPORT INFORMATION
  Report Type: Spontaneous
  Country: US (occurrence: None)
  Receive Date: 20240613
  Receipt Date: 20240613
  Transmission Date: 20240715
  Serious: No
  Sender: FDA-Public Use
  Company Number: None

PATIENT
  Age: 61 Year
  Sex: Female
  Weight: 102.6 kg

DRUGS (1)
  1. ZEPBOUND [Suspect]
     Active Substance: TIRZEPATIDE
     Indication: Weight decreased

REACTIONS (6)
  - Injection site erythema [None]
  - Injection site swelling [None]
  - Injection site pruritus [None]
  - Brain fog [None]
  - Unevaluable event [None]
  - Fatigue [None]

NARRATIVE: CASE EVENT DATE: 20240515
